FAERS Safety Report 18180635 (Version 1)
Quarter: 2020Q3

REPORT INFORMATION
  Report Type: Spontaneous
  Country: AR (occurrence: AR)
  Receive Date: 20200821
  Receipt Date: 20200821
  Transmission Date: 20201103
  Serious: Yes (Hospitalization, Other)
  Sender: FDA-Public Use
  Company Number: AR-PFIZER INC-2020197316

PATIENT
  Age: 17 Year
  Sex: Female

DRUGS (2)
  1. GENOTROPIN [Suspect]
     Active Substance: SOMATROPIN
     Indication: FOETAL GROWTH RESTRICTION
     Dosage: MORE THAN 2MG, 6 TIMES PER WEEK
     Dates: start: 20100101
  2. GENOTROPIN [Suspect]
     Active Substance: SOMATROPIN
     Indication: MALNUTRITION

REACTIONS (14)
  - Rectal perforation [Unknown]
  - Spinal disorder [Unknown]
  - Product use in unapproved indication [Unknown]
  - Gastroenteritis [Unknown]
  - Malaise [Unknown]
  - Knee deformity [Unknown]
  - Headache [Unknown]
  - Asthenia [Unknown]
  - Haemorrhage [Unknown]
  - Rectal ulcer [Unknown]
  - Haematochezia [Unknown]
  - Off label use [Unknown]
  - Weight decreased [Unknown]
  - Pain [Unknown]

NARRATIVE: CASE EVENT DATE: 2019
